FAERS Safety Report 6298031-2 (Version None)
Quarter: 2009Q3

REPORT INFORMATION
  Report Type: 
  Country: None (occurrence: None)
  Receive Date: 20090805
  Receipt Date: 20090729
  Transmission Date: 20100115
  Serious: Yes (Hospitalization, Other)
  Sender: FDA-Public Use
  Company Number: US-ELI_LILLY_AND_COMPANY-US200907006612

PATIENT
  Sex: Female

DRUGS (13)
  1. HUMALOG [Suspect]
     Dosage: 6 U, 3/D
     Dates: start: 20050101
  2. COUMADIN [Concomitant]
     Dosage: 1 MG, 3/D
  3. COUMADIN [Concomitant]
     Dosage: 1 MG, 4/D
  4. CORDARONE [Concomitant]
     Dosage: 200 MG, DAILY (1/D)
  5. ENALAPRIL MALEATE [Concomitant]
     Dosage: 5 MG, 2/D
  6. ISOSORBIDE [Concomitant]
     Dosage: 20 MG, 2/D
  7. NITROGLYCERIN [Concomitant]
     Dosage: UNK, AS NEEDED
  8. LANTUS [Concomitant]
     Dosage: 10 U, EACH EVENING
  9. KLOR-CON [Concomitant]
     Dosage: 10 MG, DAILY (1/D)
  10. ASPIRIN [Concomitant]
     Dosage: 81 MG, DAILY (1/D)
  11. FERROUS SULFATE TAB [Concomitant]
     Dosage: 325 MG, 2/D
  12. SYNTHROID [Concomitant]
     Dosage: 0.5 MG, DAILY (1/D)
  13. NOVOLOG MIX 70/30 [Concomitant]

REACTIONS (18)
  - ABDOMINAL PAIN UPPER [None]
  - APHASIA [None]
  - BLOOD POTASSIUM INCREASED [None]
  - CEREBROVASCULAR ACCIDENT [None]
  - CYSTITIS [None]
  - DIZZINESS [None]
  - DYSURIA [None]
  - FALL [None]
  - FEELING ABNORMAL [None]
  - GASTRIC DISORDER [None]
  - INFREQUENT BOWEL MOVEMENTS [None]
  - INTESTINAL FUNCTIONAL DISORDER [None]
  - MACULAR DEGENERATION [None]
  - MALAISE [None]
  - PULSE ABSENT [None]
  - THROMBOSIS [None]
  - UPPER LIMB FRACTURE [None]
  - VISUAL ACUITY REDUCED [None]
